FAERS Safety Report 6599405-2 (Version None)
Quarter: 2010Q1

REPORT INFORMATION
  Report Type: 
  Country: None (occurrence: None)
  Receive Date: 20100216
  Receipt Date: 20100209
  Transmission Date: 20100710
  Serious: Yes (Death)
  Sender: FDA-Public Use
  Company Number: 2009SP032250

PATIENT
  Age: 77 Year
  Sex: Male
  Weight: 53 kg

DRUGS (14)
  1. REMERON [Suspect]
     Indication: DEPRESSION
     Dosage: 30 MG; PO, 15 MG; PO
     Route: 048
     Dates: start: 20090926, end: 20091009
  2. REMERON [Suspect]
     Indication: DEPRESSION
     Dosage: 30 MG; PO, 15 MG; PO
     Route: 048
     Dates: start: 20091013, end: 20091021
  3. SULPIRIDE [Concomitant]
  4. URIEF (SILODOSIN) [Concomitant]
  5. BLADDERON [Concomitant]
  6. EVIPROSTAT [Concomitant]
  7. MYSLEE [Concomitant]
  8. AMOBAN [Concomitant]
  9. AMOBANTES KOBAYASHI KAKO [Concomitant]
  10. FLUNITRAZEPAM [Concomitant]
  11. SOLANAX [Concomitant]
  12. CONSTAN [Concomitant]
  13. SOLANAX [Concomitant]
  14. TOLEDOMIN [Concomitant]

REACTIONS (4)
  - AGITATED DEPRESSION [None]
  - ASPHYXIA [None]
  - COMPLETED SUICIDE [None]
  - MANIA [None]
